FAERS Safety Report 12584840 (Version 1)
Quarter: 2016Q3

REPORT INFORMATION
  Report Type: Spontaneous
  Country: US (occurrence: US)
  Receive Date: 20160722
  Receipt Date: 20160722
  Transmission Date: 20161109
  Serious: No
  Sender: FDA-Public Use
  Company Number: US-ACTELION-A-US2016-139161

PATIENT
  Age: 75 Year
  Sex: Female

DRUGS (15)
  1. LASIX [Concomitant]
     Active Substance: FUROSEMIDE
  2. ALLOPURINOL. [Concomitant]
     Active Substance: ALLOPURINOL
  3. METOPROLOL. [Concomitant]
     Active Substance: METOPROLOL
  4. COENZYME Q10 [Concomitant]
     Active Substance: UBIDECARENONE
  5. MVI [Concomitant]
     Active Substance: VITAMINS
  6. VITAMIN B COMPLEX [Concomitant]
     Active Substance: CYANOCOBALAMIN\DEXPANTHENOL\NIACINAMIDE\PYRIDOXINE HYDROCHLORIDE\RIBOFLAVIN 5^-PHOSPHATE SODIUM\THIAMINE HYDROCHLORIDE\VITAMIN B COMPLEX
  7. PSYLLIUM [Concomitant]
     Active Substance: PLANTAGO SEED
  8. VALCHLOR [Suspect]
     Active Substance: MECHLORETHAMINE
     Indication: MYCOSIS FUNGOIDES
     Dosage: UNK
     Route: 061
     Dates: start: 20160120
  9. BENAZEPRIL [Concomitant]
     Active Substance: BENAZEPRIL HYDROCHLORIDE
  10. VITAMIN D3 [Concomitant]
     Active Substance: CHOLECALCIFEROL
  11. PROBIOTIC [Concomitant]
     Active Substance: PROBIOTICS NOS
  12. FISH LIVER OIL W/LIVER EXTRACT/VITAMINS NOS [Concomitant]
  13. NORVASC [Concomitant]
     Active Substance: AMLODIPINE BESYLATE
  14. ALPHA LIPOIC ACID [Concomitant]
     Active Substance: .ALPHA.-LIPOIC ACID
  15. MAGNESIUM [Concomitant]
     Active Substance: MAGNESIUM

REACTIONS (1)
  - Application site irritation [Recovering/Resolving]
